FAERS Safety Report 11437801 (Version 2)
Quarter: 2015Q4

REPORT INFORMATION
  Report Type: Spontaneous
  Country: FR (occurrence: FR)
  Receive Date: 20150831
  Receipt Date: 20151028
  Transmission Date: 20160304
  Serious: Yes (Other)
  Sender: FDA-Public Use
  Company Number: PHHY2015FR092109

PATIENT
  Age: 52 Year
  Sex: Male
  Weight: 125 kg

DRUGS (3)
  1. BACLOFEN. [Concomitant]
     Active Substance: BACLOFEN
     Indication: TINNITUS
     Dosage: ? TABLET ON THE REQUEST
     Route: 048
     Dates: start: 2013
  2. ULTIBRO BREEZHALER [Suspect]
     Active Substance: GLYCOPYRRONIUM\INDACATEROL
     Indication: CHRONIC OBSTRUCTIVE PULMONARY DISEASE
     Dosage: 1 DF, QD
     Route: 055
     Dates: start: 20150702, end: 20150711
  3. PAPAVER SOMNIFERUM [Concomitant]
     Indication: PRODUCT USED FOR UNKNOWN INDICATION
     Route: 065

REACTIONS (26)
  - Swelling [Not Recovered/Not Resolved]
  - Face oedema [Not Recovered/Not Resolved]
  - Malaise [Recovered/Resolved]
  - Malaise [Recovered/Resolved]
  - Muscle spasms [Unknown]
  - Cardiac failure [Unknown]
  - Fall [Recovered/Resolved]
  - Seizure [Recovered/Resolved]
  - Oedema peripheral [Not Recovered/Not Resolved]
  - Rash [Recovered/Resolved]
  - Cardiac arrest [Recovered/Resolved]
  - Headache [Unknown]
  - Pruritus [Not Recovered/Not Resolved]
  - Swelling face [Not Recovered/Not Resolved]
  - Urticaria [Not Recovered/Not Resolved]
  - Feeling abnormal [Recovered/Resolved]
  - Tinnitus [Unknown]
  - Staphylococcal skin infection [Not Recovered/Not Resolved]
  - Loss of consciousness [Recovered/Resolved]
  - Chills [Recovered/Resolved]
  - Movement disorder [Recovered/Resolved]
  - Choking [Recovered/Resolved]
  - Malaise [Recovered/Resolved]
  - Peripheral swelling [Not Recovered/Not Resolved]
  - Gait disturbance [Unknown]
  - Erythema [Not Recovered/Not Resolved]

NARRATIVE: CASE EVENT DATE: 20150703
